FAERS Safety Report 6684926-4 (Version None)
Quarter: 2010Q2

REPORT INFORMATION
  Report Type: 
  Country: None (occurrence: None)
  Receive Date: 20100416
  Receipt Date: 20100408
  Transmission Date: 20101027
  Serious: Yes (Other)
  Sender: FDA-Public Use
  Company Number: ES-ABBOTT-10P-144-0637224-00

PATIENT
  Sex: Male
  Weight: 58 kg

DRUGS (1)
  1. KALETRA [Suspect]
     Indication: HIV INFECTION
     Route: 048
     Dates: start: 20090223

REACTIONS (2)
  - RETROPERITONEAL NEOPLASM [None]
  - THROMBOPHLEBITIS [None]
